FAERS Safety Report 16108946 (Version 5)
Quarter: 2019Q4

REPORT INFORMATION
  Report Type: Report from Study
  Country: GB (occurrence: GB)
  Receive Date: 20190323
  Receipt Date: 20191113
  Transmission Date: 20200122
  Serious: Yes (Other)
  Sender: FDA-Public Use
  Company Number: PHHY2019GB063095

PATIENT
  Sex: Female

DRUGS (2)
  1. HYRIMOZ [Suspect]
     Active Substance: ADALIMUMAB-ADAZ
     Indication: COLITIS ULCERATIVE
     Dosage: 40 MG, Q2W
     Route: 058
     Dates: start: 20190121, end: 201903
  2. HYRIMOZ [Suspect]
     Active Substance: ADALIMUMAB-ADAZ
     Dosage: 40 MG, Q2W
     Route: 058
     Dates: start: 20191105

REACTIONS (16)
  - Vomiting [Unknown]
  - Antibody test positive [Unknown]
  - Abdominal pain upper [Unknown]
  - Discomfort [Unknown]
  - Thrombosis [Recovered/Resolved]
  - Hypokinesia [Unknown]
  - Nausea [Unknown]
  - Peripheral swelling [Not Recovered/Not Resolved]
  - Back injury [Unknown]
  - Induration [Unknown]
  - Pyrexia [Unknown]
  - Burning sensation [Unknown]
  - Pain in extremity [Unknown]
  - Feeling hot [Unknown]
  - Product storage error [Unknown]
  - Gait disturbance [Unknown]
